FAERS Safety Report 22004557 (Version 1)
Quarter: 2023Q1

REPORT INFORMATION
  Report Type: Spontaneous
  Country: HU (occurrence: HU)
  Receive Date: 20230217
  Receipt Date: 20230217
  Transmission Date: 20230418
  Serious: Yes (Other)
  Sender: FDA-Public Use
  Company Number: HU-HALEON-HUCH2023GSK007066

PATIENT

DRUGS (1)
  1. IBUPROFEN [Suspect]
     Active Substance: IBUPROFEN
     Indication: Pain
     Dosage: UNK

REACTIONS (6)
  - Dizziness [Unknown]
  - Presyncope [Unknown]
  - Poisoning [Unknown]
  - Tremor [Unknown]
  - Product substitution issue [Unknown]
  - Product tampering [Unknown]
